FAERS Safety Report 18568856 (Version 1)
Quarter: 2020Q4

REPORT INFORMATION
  Report Type: Spontaneous
  Country: AT (occurrence: AT)
  Receive Date: 20201202
  Receipt Date: 20201202
  Transmission Date: 20210114
  Serious: Yes (Hospitalization)
  Sender: FDA-Public Use
  Company Number: AT-AMGEN-AUTNI2020192799

PATIENT
  Age: 57 Year
  Sex: Female
  Weight: 86 kg

DRUGS (25)
  1. PACLITAXEL. [Suspect]
     Active Substance: PACLITAXEL
     Indication: BREAST CANCER
     Dosage: 151.26 MILLIGRAM, QWK
     Route: 042
     Dates: start: 20191014, end: 20191014
  2. ENTEROBENE [Concomitant]
     Indication: DIARRHOEA
     Dosage: ONGOING = CHECKED
     Dates: start: 20191015
  3. MOLAXOLE [Concomitant]
     Active Substance: POLYETHYLENE GLYCOL 3350\POTASSIUM CHLORIDE\SODIUM BICARBONATE\SODIUM CHLORIDE
     Dosage: ONGOING = CHECKED
     Dates: start: 20191015
  4. PASSEDAN [Concomitant]
     Dosage: ONGOING = CHECKED
     Dates: start: 20191010
  5. KYTRIL [Concomitant]
     Active Substance: GRANISETRON HYDROCHLORIDE
     Dosage: ONGOING = CHECKED
     Dates: start: 20191014
  6. ULSAL [Concomitant]
     Active Substance: RANITIDINE HYDROCHLORIDE
     Dosage: ONGOING = CHECKED
     Dates: start: 20191014
  7. BEROTEC [Concomitant]
     Active Substance: FENOTEROL HYDROBROMIDE
     Dosage: ONGOING = CHECKED
  8. TRASTUZUMAB. [Suspect]
     Active Substance: TRASTUZUMAB
     Indication: BREAST CANCER
     Dosage: 704 MILLIGRAM, Q3WK
     Route: 041
     Dates: start: 20191014, end: 20191014
  9. NOVALGIN (METAMIZOLE SODIUM) [Concomitant]
     Active Substance: METAMIZOLE SODIUM
     Dosage: ONGOING = CHECKED
     Dates: start: 20191015
  10. SPIOLTO RESPIMAT [Concomitant]
     Active Substance: OLODATEROL HYDROCHLORIDE\TIOTROPIUM BROMIDE MONOHYDRATE
     Dosage: ONGOING = CHECKED
  11. FENISTIL [Concomitant]
     Active Substance: DIMETHINDENE
     Dosage: ONGOING = CHECKED
     Dates: start: 20191014
  12. PERTUZUMAB. [Suspect]
     Active Substance: PERTUZUMAB
     Indication: BREAST CANCER
     Dosage: 840 MILLIGRAM, Q3WK
     Route: 042
     Dates: start: 20191014
  13. PASPERTIN [METOCLOPRAMIDE HYDROCHLORIDE] [Concomitant]
     Active Substance: METOCLOPRAMIDE HYDROCHLORIDE
     Dosage: ONGOING = CHECKED
     Dates: start: 20191015
  14. DEXAMETHASON [DEXAMETHASONE] [Concomitant]
     Active Substance: DEXAMETHASONE
     Dosage: ONGOING = CHECKED
     Dates: start: 20191021
  15. PANTOLOC [PANTOPRAZOLE] [Concomitant]
     Active Substance: PANTOPRAZOLE SODIUM
     Dosage: ONGOING = CHECKED
  16. APREDNISLON [Concomitant]
     Active Substance: PREDNISOLONE
     Dosage: ONGOING = CHECKED
  17. CONCOR [Concomitant]
     Active Substance: BISOPROLOL FUMARATE
     Dosage: ONGOING = CHECKED
  18. ACEMIN [LISINOPRIL] [Concomitant]
     Active Substance: LISINOPRIL
     Dosage: ONGOING = CHECKED
  19. SIMVASTATIN. [Concomitant]
     Active Substance: SIMVASTATIN
     Dosage: ONGOING = CHECKED
  20. DILTIAZEM. [Concomitant]
     Active Substance: DILTIAZEM
     Dosage: ONGOING = CHECKED
  21. TRITTICO [Concomitant]
     Active Substance: TRAZODONE HYDROCHLORIDE
     Dosage: ONGOING = CHECKED
  22. DAXAS [Concomitant]
     Active Substance: ROFLUMILAST
     Dosage: ONGOING = CHECKED
  23. VITAMINS WITH MINERALS [Concomitant]
     Active Substance: MINERALS\VITAMINS
     Dosage: ONGOING = CHECKED
  24. EFECTIN [Concomitant]
     Active Substance: VENLAFAXINE HYDROCHLORIDE
     Dosage: ONGOING = CHECKED
  25. ALVESCO [Concomitant]
     Active Substance: CICLESONIDE
     Dosage: ONGOING = CHECKED

REACTIONS (2)
  - C-reactive protein increased [Recovered/Resolved]
  - Off label use [Unknown]

NARRATIVE: CASE EVENT DATE: 20191014
